FAERS Safety Report 6751201-9 (Version None)
Quarter: 2010Q2

REPORT INFORMATION
  Report Type: 
  Country: None (occurrence: None)
  Receive Date: 20100602
  Receipt Date: 20100525
  Transmission Date: 20101027
  Serious: Yes (Hospitalization)
  Sender: FDA-Public Use
  Company Number: JP-JNJFOC-20090503187

PATIENT
  Sex: Female
  Weight: 58 kg

DRUGS (16)
  1. FENTANYL [Suspect]
     Indication: PAIN
     Route: 062
  2. FENTANYL [Suspect]
     Indication: DRUG USE FOR UNKNOWN INDICATION
     Route: 062
  3. FENTANYL [Suspect]
     Route: 062
  4. FENTANYL [Suspect]
     Route: 062
  5. FENTANYL [Suspect]
     Route: 062
  6. FENTANYL [Suspect]
     Route: 062
  7. FENTANYL [Suspect]
     Route: 062
  8. FENTANYL [Suspect]
     Route: 062
  9. FENTANYL [Suspect]
     Route: 062
  10. FENTANYL [Suspect]
     Route: 062
  11. SHOUSAIKOTOU [Concomitant]
     Indication: PAIN
     Dosage: GRANULATED POWDER
     Route: 048
  12. VOLTAREN [Concomitant]
     Indication: PAIN
     Route: 054
  13. RHYTHMY [Concomitant]
     Indication: INSOMNIA
     Route: 048
  14. URSO 250 [Concomitant]
     Indication: CHOLELITHIASIS
     Route: 048
  15. TATHION [Concomitant]
     Indication: CATARACT
     Dosage: EYE DROPS, BOTH EYES
     Route: 031
  16. MIROL [Concomitant]
     Indication: GLAUCOMA
     Dosage: EYE DROPS
     Route: 031

REACTIONS (1)
  - DECREASED APPETITE [None]
